FAERS Safety Report 13194445 (Version 2)
Quarter: 2017Q1

REPORT INFORMATION
  Report Type: Report from Study
  Country: US (occurrence: US)
  Receive Date: 20170207
  Receipt Date: 20170216
  Transmission Date: 20170428
  Serious: Yes (Other)
  Sender: FDA-Public Use
  Company Number: US-JAZZ-2016-US-022108

PATIENT
  Sex: Female

DRUGS (26)
  1. NEXIUM [Concomitant]
     Active Substance: ESOMEPRAZOLE MAGNESIUM
  2. CELEXA [Concomitant]
     Active Substance: CITALOPRAM HYDROBROMIDE
  3. XYREM [Suspect]
     Active Substance: SODIUM OXYBATE
     Indication: NARCOLEPSY
     Dosage: 1.5 G, BID
     Route: 048
     Dates: start: 201102, end: 201103
  4. OXCARBAZEPINE. [Suspect]
     Active Substance: OXCARBAZEPINE
     Indication: PAIN
     Dosage: UNK
  5. FOCUSFACTOR [Concomitant]
  6. LUGOL [Concomitant]
     Active Substance: IODINE\POTASSIUM IODIDE
  7. PROZAC [Concomitant]
     Active Substance: FLUOXETINE HYDROCHLORIDE
  8. XYREM [Suspect]
     Active Substance: SODIUM OXYBATE
     Dosage: DOSE ADJUSTMENTS
     Route: 048
     Dates: start: 201103, end: 201402
  9. TEGRETOL [Suspect]
     Active Substance: CARBAMAZEPINE
     Indication: PRODUCT USED FOR UNKNOWN INDICATION
     Dosage: UNK
     Dates: start: 20151016
  10. COLLAGEN RENEW WITH VITAMIN C [Concomitant]
  11. FLONASE                            /00908302/ [Concomitant]
     Active Substance: MOMETASONE FUROATE
  12. GLUCOSAMINE + CHONDROITIN WITH MSM /06119101/ [Concomitant]
  13. EPIPEN [Concomitant]
     Active Substance: EPINEPHRINE
  14. ESTROVEN [Concomitant]
     Active Substance: DIETARY SUPPLEMENT
  15. PROVIGIL [Concomitant]
     Active Substance: MODAFINIL
  16. VITAMIN C [Concomitant]
     Active Substance: ASCORBIC ACID
  17. IBUPROFEN. [Concomitant]
     Active Substance: IBUPROFEN
  18. VITAMIN C [Concomitant]
     Active Substance: ASCORBIC ACID
  19. LYMPHOMYOSOT                       /05593001/ [Concomitant]
  20. METHYLPHENIDATE. [Concomitant]
     Active Substance: METHYLPHENIDATE
  21. MULTIVITAMIN                       /00097801/ [Concomitant]
     Active Substance: VITAMINS
  22. STRATTERA [Concomitant]
     Active Substance: ATOMOXETINE HYDROCHLORIDE
  23. XYREM [Suspect]
     Active Substance: SODIUM OXYBATE
     Dosage: 4.5 G, BID
     Route: 048
     Dates: start: 201402
  24. ASPIRIN                            /00002701/ [Concomitant]
     Active Substance: ASPIRIN
  25. COENZYME Q10 [Concomitant]
     Active Substance: UBIDECARENONE
  26. CARBAMAZEPINE. [Suspect]
     Active Substance: CARBAMAZEPINE
     Indication: PRODUCT USED FOR UNKNOWN INDICATION

REACTIONS (12)
  - Dizziness [Unknown]
  - Migraine with aura [Not Recovered/Not Resolved]
  - Gastroenteritis viral [Unknown]
  - Pain [Unknown]
  - Tremor [Unknown]
  - Sleep apnoea syndrome [Unknown]
  - Hepatic enzyme increased [Unknown]
  - Malaise [Unknown]
  - Drug intolerance [Unknown]
  - Facial pain [Unknown]
  - Night sweats [Recovered/Resolved]
  - Somnolence [Unknown]
